FAERS Safety Report 13369261 (Version 3)
Quarter: 2017Q2

REPORT INFORMATION
  Report Type: Report from Study
  Country: IT (occurrence: IT)
  Receive Date: 20170324
  Receipt Date: 20170515
  Transmission Date: 20170830
  Serious: Yes (Other)
  Sender: FDA-Public Use
  Company Number: PHHY2017IT042818

PATIENT
  Age: 59 Year
  Sex: Male

DRUGS (1)
  1. GILENYA [Suspect]
     Active Substance: FINGOLIMOD HYDROCHLORIDE
     Indication: MULTIPLE SCLEROSIS
     Dosage: 0.5 MG, QD
     Route: 048
     Dates: start: 20140117

REACTIONS (7)
  - Neutrophil count increased [Unknown]
  - White blood cell count increased [Recovered/Resolved]
  - Atrial fibrillation [Recovering/Resolving]
  - Monocyte count increased [Unknown]
  - Haematocrit decreased [Unknown]
  - Lymphopenia [Recovered/Resolved]
  - Eosinophil count decreased [Unknown]

NARRATIVE: CASE EVENT DATE: 20151001
